FAERS Safety Report 18077717 (Version 2)
Quarter: 2020Q4

REPORT INFORMATION
  Report Type: Report from Study
  Country: US (occurrence: US)
  Receive Date: 20200727
  Receipt Date: 20201118
  Transmission Date: 20210113
  Serious: No
  Sender: FDA-Public Use
  Company Number: NVSC2020US203585

PATIENT
  Sex: Female
  Weight: 70.76 kg

DRUGS (1)
  1. GLATOPA [Suspect]
     Active Substance: GLATIRAMER ACETATE
     Indication: MULTIPLE SCLEROSIS
     Dosage: 40 MG, Q3W  (3X PER WEEK)
     Route: 058
     Dates: start: 20200801

REACTIONS (10)
  - Injection site pain [Unknown]
  - Palpitations [Unknown]
  - Sinus rhythm [Unknown]
  - Feeling abnormal [Unknown]
  - Swelling [Unknown]
  - Depression [Unknown]
  - Contusion [Unknown]
  - Panic attack [Unknown]
  - Fatigue [Unknown]
  - Inflammation [Unknown]
